FAERS Safety Report 6818261-8 (Version None)
Quarter: 2010Q3

REPORT INFORMATION
  Report Type: 
  Country: None (occurrence: None)
  Receive Date: 20100706
  Receipt Date: 20070628
  Transmission Date: 20110219
  Serious: No
  Sender: FDA-Public Use
  Company Number: US-PFIZER INC-2007053525

PATIENT
  Age: 32 Year
  Sex: Female

DRUGS (2)
  1. ZITHROMAX [Suspect]
     Indication: BRONCHITIS
     Dates: start: 20070623
  2. ZITHROMAX [Suspect]
     Indication: PNEUMONIA

REACTIONS (2)
  - CHROMATURIA [None]
  - URINARY TRACT DISORDER [None]
